FAERS Safety Report 18734092 (Version 1)
Quarter: 2021Q1

REPORT INFORMATION
  Report Type: Report from Study
  Country: TR (occurrence: TR)
  Receive Date: 20210113
  Receipt Date: 20210113
  Transmission Date: 20210419
  Serious: Yes (Other)
  Sender: FDA-Public Use
  Company Number: TR-TEVA-2021-TR-1867197

PATIENT
  Age: 51 Year
  Sex: Female

DRUGS (1)
  1. CARBOPLATIN. [Suspect]
     Active Substance: CARBOPLATIN
     Indication: ENDOMETRIAL CANCER
     Dosage: COMPLETED THIRTEEN CYCLES
     Route: 050

REACTIONS (4)
  - Hypoxia [Recovered/Resolved]
  - Hypotension [Recovered/Resolved]
  - Type I hypersensitivity [Recovered/Resolved]
  - Angioedema [Recovered/Resolved]
